FAERS Safety Report 23860944 (Version 1)
Quarter: 2024Q2

REPORT INFORMATION
  Report Type: Spontaneous
  Country: US (occurrence: None)
  Receive Date: 20240516
  Receipt Date: 20240516
  Transmission Date: 20240716
  Serious: No
  Sender: FDA-Public Use
  Company Number: US-NATCOUSA-2024-NATCOUSA-000199

PATIENT
  Age: 76 Year
  Sex: Female
  Weight: 99.79 kg

DRUGS (2)
  1. ANASTROZOLE [Suspect]
     Active Substance: ANASTROZOLE
     Indication: Breast cancer
     Dosage: 1MG FOR ABOUT 8 MONTHS
     Route: 065
  2. INSULIN NOS [Concomitant]
     Active Substance: INSULIN NOS
     Indication: Diabetes mellitus

REACTIONS (14)
  - Insomnia [Unknown]
  - Fatigue [Unknown]
  - Nervousness [Unknown]
  - Hot flush [Unknown]
  - Headache [Unknown]
  - Weight increased [Unknown]
  - Blood pressure increased [Unknown]
  - Pain [Unknown]
  - Tendonitis [Unknown]
  - Lacrimation increased [Unknown]
  - Chest discomfort [Unknown]
  - Facial pain [Unknown]
  - Gastrooesophageal reflux disease [Unknown]
  - Irritability [Unknown]
